FAERS Safety Report 6636113-3 (Version None)
Quarter: 2010Q1

REPORT INFORMATION
  Report Type: 
  Country: None (occurrence: None)
  Receive Date: 20100225
  Receipt Date: 20091109
  Transmission Date: 20100710
  Serious: Yes (Hospitalization, Other)
  Sender: FDA-Public Use
  Company Number: US-JNJFOC-20091102755

PATIENT
  Age: 78 Year
  Sex: Female

DRUGS (7)
  1. IBUPROFEN [Suspect]
     Indication: ARTHRITIS
     Dosage: 400 MG, 1 IN 1 AS NECESSARY, ORAL
     Route: 048
     Dates: start: 20060101
  2. ASPIRIN [Suspect]
     Indication: ROUTINE HEALTH MAINTENANCE
     Dosage: 81 MG, 1 IN 1 DAY, ORAL
     Route: 048
     Dates: start: 19680101
  3. FOSAMAX [Suspect]
     Indication: OSTEOPOROSIS
     Dosage: 70 MG, 1 IN 1 WEEK, ORAL
     Route: 048
  4. BLINDED STUDY MEDICATION (INVESTIGATIONAL DRUG) [Concomitant]
  5. EXELON [Concomitant]
  6. NAMENDA [Concomitant]
  7. VERAPAMIL [Concomitant]

REACTIONS (1)
  - GASTRIC ULCER [None]
